FAERS Safety Report 23164473 (Version 1)
Quarter: 2023Q4

REPORT INFORMATION
  Report Type: Report from Study
  Country: AR (occurrence: AR)
  Receive Date: 20231109
  Receipt Date: 20231109
  Transmission Date: 20240110
  Serious: Yes (Other)
  Sender: FDA-Public Use
  Company Number: AR-002147023-NVSC2023AR057122

PATIENT
  Age: 62 Year
  Sex: Female

DRUGS (3)
  1. COSENTYX [Suspect]
     Active Substance: SECUKINUMAB
     Indication: Psoriatic arthropathy
     Dosage: 300 MG, QMO
     Route: 058
     Dates: start: 20221007, end: 20230220
  2. COSENTYX [Suspect]
     Active Substance: SECUKINUMAB
     Dosage: 300 MG, QMO
     Route: 058
  3. COSENTYX [Suspect]
     Active Substance: SECUKINUMAB
     Dosage: 300 MG, QMO
     Route: 065
     Dates: start: 202210

REACTIONS (23)
  - Psoriatic arthropathy [Unknown]
  - Diabetes mellitus [Unknown]
  - Groin pain [Unknown]
  - Gait disturbance [Unknown]
  - Hypertension [Unknown]
  - Muscle spasms [Unknown]
  - Peripheral swelling [Unknown]
  - Arthralgia [Unknown]
  - Varicose vein [Unknown]
  - Headache [Recovered/Resolved]
  - Nausea [Unknown]
  - Vertigo [Unknown]
  - Headache [Unknown]
  - Visual impairment [Unknown]
  - Abdominal pain upper [Recovered/Resolved]
  - Illness [Unknown]
  - General physical health deterioration [Unknown]
  - Dysstasia [Unknown]
  - Psoriasis [Unknown]
  - Skin lesion [Unknown]
  - Finger deformity [Unknown]
  - Hand deformity [Unknown]
  - Product dose omission issue [Unknown]

NARRATIVE: CASE EVENT DATE: 20230220
